FAERS Safety Report 20368849 (Version 4)
Quarter: 2022Q3

REPORT INFORMATION
  Report Type: Report from Study
  Country: US (occurrence: US)
  Receive Date: 20220124
  Receipt Date: 20220808
  Transmission Date: 20221027
  Serious: No
  Sender: FDA-Public Use
  Company Number: US-NOVARTISTESTPH-NVSC2022US014057

PATIENT
  Age: 68 Year
  Sex: Male

DRUGS (2)
  1. ENTRESTO [Suspect]
     Active Substance: SACUBITRIL\VALSARTAN
     Indication: Product used for unknown indication
     Dosage: UNK UNK, BID
     Route: 048
  2. POTASSIUM [Concomitant]
     Active Substance: POTASSIUM
     Indication: Product used for unknown indication
     Dosage: UNK
     Route: 065

REACTIONS (15)
  - Weight decreased [Unknown]
  - Rhinorrhoea [Unknown]
  - Decreased appetite [Unknown]
  - Muscle spasms [Unknown]
  - Weight increased [Unknown]
  - Throat irritation [Unknown]
  - Pain in extremity [Unknown]
  - Neck pain [Unknown]
  - Arthralgia [Unknown]
  - Inflammation [Unknown]
  - Arthritis [Unknown]
  - Fatigue [Unknown]
  - Hypotension [Unknown]
  - Cough [Unknown]
  - Product dose omission in error [Unknown]

NARRATIVE: CASE EVENT DATE: 20220101
